FAERS Safety Report 18572028 (Version 3)
Quarter: 2020Q4

REPORT INFORMATION
  Report Type: Report from Study
  Country: NL (occurrence: NL)
  Receive Date: 20201202
  Receipt Date: 20201228
  Transmission Date: 20210114
  Serious: Yes (Death, Other)
  Sender: FDA-Public Use
  Company Number: NL-PFIZER INC-2020394235

PATIENT
  Age: 57 Year
  Sex: Female

DRUGS (14)
  1. CHLORAMPHENICOL [Concomitant]
     Active Substance: CHLORAMPHENICOL
     Dosage: 5MG/ML FL 10ML, 6X/DAY1DROP
  2. SODIUM CHLORIDE. [Concomitant]
     Active Substance: SODIUM CHLORIDE
     Dosage: 600 MG, 3X/DAY 2 TABLETS
  3. PANTOPRAZOLE [Concomitant]
     Active Substance: PANTOPRAZOLE
     Dosage: 40 MG, 1X/DAY
  4. XGEVA [Suspect]
     Active Substance: DENOSUMAB
     Indication: METASTASES TO BONE
     Dosage: 120 MG, CYCLIC (EVERY 4 WEEKS)
     Route: 058
     Dates: end: 20201013
  5. METOCLOPRAMIDE. [Concomitant]
     Active Substance: METOCLOPRAMIDE
     Dosage: 10 MG, 1-3X DAY 1 TABLET
  6. CAPECITABINE. [Concomitant]
     Active Substance: CAPECITABINE
     Dosage: 150 MG, 2X/DAY 1 TABLET
  7. CALCIUM CARBONATE/COLECALCIFEROL [Concomitant]
     Active Substance: CALCIUM CARBONATE\CHOLECALCIFEROL
     Dosage: 1.25 G, 1X/DAY
  8. XGEVA [Suspect]
     Active Substance: DENOSUMAB
     Indication: PROPHYLAXIS
  9. SALBUTAMOL [Concomitant]
     Active Substance: ALBUTEROL
     Dosage: 100 UG, 4X/DAY 1 INHALATION
     Route: 065
  10. CALCIUM CARBONATE. [Concomitant]
     Active Substance: CALCIUM CARBONATE
     Dosage: 1.25 G, 1X/DAY 2 TABLETS
  11. CALCIUM CARBONATE/COLECALCIFEROL [Concomitant]
     Active Substance: CALCIUM CARBONATE\CHOLECALCIFEROL
     Dosage: UNK
  12. PALBOCICLIB [Suspect]
     Active Substance: PALBOCICLIB
     Dosage: UNK
  13. CAPECITABINE. [Concomitant]
     Active Substance: CAPECITABINE
     Dosage: 500 MG, UNKNOWN FREQUENCY
  14. FULVESTRANT INJECTION [Concomitant]
     Active Substance: FULVESTRANT
     Dosage: 250MG=5ML

REACTIONS (5)
  - Neoplasm progression [Not Recovered/Not Resolved]
  - Vomiting [Not Recovered/Not Resolved]
  - Blood calcium decreased [Unknown]
  - Death [Fatal]
  - Diarrhoea [Not Recovered/Not Resolved]

NARRATIVE: CASE EVENT DATE: 2020
